FAERS Safety Report 6059440-X (Version None)
Quarter: 2009Q1

REPORT INFORMATION
  Report Type: 
  Country: None (occurrence: None)
  Receive Date: 20090130
  Receipt Date: 20090120
  Transmission Date: 20090719
  Serious: Yes (Other)
  Sender: FDA-Public Use
  Company Number: PHHY2009BR02685

PATIENT
  Age: 51 Year
  Sex: Female
  Weight: 48 kg

DRUGS (2)
  1. ACLASTA [Suspect]
     Indication: OSTEOPOROSIS
     Dosage: UNK
     Dates: start: 20090119
  2. CALCITRAN [Concomitant]
     Indication: OSTEOPOROSIS
     Dosage: 10 ML/DAY
     Route: 048
     Dates: start: 20090113

REACTIONS (5)
  - CHEST PAIN [None]
  - HEADACHE [None]
  - INSOMNIA [None]
  - PAIN [None]
  - VOMITING [None]
